FAERS Safety Report 7906113-1 (Version None)
Quarter: 2011Q4

REPORT INFORMATION
  Report Type: 
  Country: None (occurrence: None)
  Receive Date: 20111109
  Receipt Date: 20111025
  Transmission Date: 20120403
  Serious: Yes (Other)
  Sender: FDA-Public Use
  Company Number: TPA2011A07065

PATIENT
  Age: 76 Year
  Sex: Male
  Weight: 95.2554 kg

DRUGS (6)
  1. GLIPIZIDE [Concomitant]
  2. METOPROLOL ER (METOPROLOL) [Concomitant]
  3. METFORMIN HCL [Concomitant]
  4. LISINOPRIL [Concomitant]
  5. ACTOS [Suspect]
     Indication: TYPE 2 DIABETES MELLITUS
     Dosage: 45 MG, 1 IN 1 D, PER ORAL
     Route: 048
     Dates: end: 20110901
  6. LOVASTATIN [Concomitant]

REACTIONS (3)
  - WEIGHT INCREASED [None]
  - DYSPNOEA [None]
  - CORONARY ARTERY OCCLUSION [None]
